FAERS Safety Report 6863711-4 (Version None)
Quarter: 2010Q3

REPORT INFORMATION
  Report Type: 
  Country: None (occurrence: None)
  Receive Date: 20100721
  Receipt Date: 20080310
  Transmission Date: 20110219
  Serious: No
  Sender: FDA-Public Use
  Company Number: US-PFIZER INC-2008022522

PATIENT
  Age: 73 Year
  Sex: Male
  Weight: 77.3 kg

DRUGS (2)
  1. CHANTIX [Suspect]
     Indication: SMOKING CESSATION THERAPY
     Route: 048
  2. CIMETIDINE [Concomitant]

REACTIONS (2)
  - DYSPEPSIA [None]
  - WEIGHT INCREASED [None]
